FAERS Safety Report 5398688-4 (Version None)
Quarter: 2007Q3

REPORT INFORMATION
  Report Type: 
  Country: None (occurrence: None)
  Receive Date: 20070726
  Receipt Date: 20060921
  Transmission Date: 20080115
  Serious: No
  Sender: FDA-Public Use
  Company Number: US-AMGEN-US194269

PATIENT
  Sex: Male

DRUGS (7)
  1. EPOGEN [Suspect]
     Indication: RENAL FAILURE CHRONIC
     Route: 065
     Dates: start: 20040101
  2. ACTIVASE [Concomitant]
     Route: 065
  3. VANCOMYCIN [Concomitant]
     Route: 065
  4. CIPRO [Concomitant]
     Route: 065
  5. BENADRYL [Concomitant]
     Route: 065
  6. LEVOTHYROXINE SODIUM [Concomitant]
     Route: 065
  7. RANITIDINE [Concomitant]
     Route: 065

REACTIONS (1)
  - HAEMOGLOBIN DECREASED [None]
